FAERS Safety Report 5673986-5 (Version None)
Quarter: 2008Q1

REPORT INFORMATION
  Report Type: 
  Country: None (occurrence: None)
  Receive Date: 20080319
  Receipt Date: 20080319
  Transmission Date: 20080703
  Serious: No
  Sender: FDA-Public Use
  Company Number: None

PATIENT
  Age: 48 Year
  Sex: Female
  Weight: 70.7611 kg

DRUGS (2)
  1. SIMVASTATIN [Suspect]
     Indication: HYPERLIPIDAEMIA
     Dosage: 20 MG  ONE DAILY  PO
     Route: 048
     Dates: start: 20071107, end: 20071119
  2. PROVACHOL [Suspect]
     Indication: HYPERLIPIDAEMIA
     Dosage: 20 MG  ONCE DAILY  P.0.
     Route: 048
     Dates: start: 20071128, end: 20080103

REACTIONS (3)
  - ARTHRALGIA [None]
  - MUSCULOSKELETAL CHEST PAIN [None]
  - MYALGIA [None]
